FAERS Safety Report 10968091 (Version 1)
Quarter: 2015Q1

REPORT INFORMATION
  Report Type: Spontaneous
  Country: US (occurrence: US)
  Receive Date: 20150330
  Receipt Date: 20150330
  Transmission Date: 20150721
  Serious: No
  Sender: FDA-Public Use
  Company Number: US-ENDO PHARMACEUTICALS INC.-CYCB20140007

PATIENT
  Sex: Female

DRUGS (7)
  1. CYCLOBENZAPRINE HYDROCHLORIDE 10MG [Suspect]
     Active Substance: CYCLOBENZAPRINE HYDROCHLORIDE
     Indication: FIBROMYALGIA
     Dosage: UNKNOWN
     Route: 048
     Dates: end: 201406
  2. CYCLOBENZAPRINE HYDROCHLORIDE 10MG [Suspect]
     Active Substance: CYCLOBENZAPRINE HYDROCHLORIDE
     Indication: SCOLIOSIS
  3. GABAPENTIN. [Concomitant]
     Active Substance: GABAPENTIN
     Indication: PRODUCT USED FOR UNKNOWN INDICATION
     Route: 065
  4. CLONAZEPAM 0.5MG [Concomitant]
     Active Substance: CLONAZEPAM
     Indication: PALPITATIONS
     Dosage: UNKNOWN
     Route: 048
     Dates: start: 2013
  5. AMITRIPTYLINE [Concomitant]
     Active Substance: AMITRIPTYLINE
     Indication: FIBROMYALGIA
     Dosage: UNKNOWN
     Route: 048
  6. ALPRAZOLAM IR TABLETS 0.5MG [Concomitant]
     Active Substance: ALPRAZOLAM
     Indication: PRODUCT USED FOR UNKNOWN INDICATION
     Route: 048
  7. HYDROCODONE/ACETAMINOPHEN [Concomitant]
     Active Substance: ACETAMINOPHEN\HYDROCODONE
     Indication: PRODUCT USED FOR UNKNOWN INDICATION
     Dosage: 10/325MG
     Route: 065

REACTIONS (3)
  - Deafness [Not Recovered/Not Resolved]
  - Tinnitus [Not Recovered/Not Resolved]
  - Pain in jaw [Not Recovered/Not Resolved]
